FAERS Safety Report 4872479-2 (Version None)
Quarter: 2005Q4

REPORT INFORMATION
  Report Type: 
  Country: None (occurrence: None)
  Receive Date: 20051201
  Receipt Date: 20050803
  Transmission Date: 20060501
  Serious: No
  Sender: FDA-Public Use
  Company Number: 2005PV000837

PATIENT
  Age: 69 Year
  Sex: Male
  Weight: 92.9874 kg

DRUGS (10)
  1. BYETTA [Suspect]
     Indication: DIABETES MELLITUS NON-INSULIN-DEPENDENT
     Dosage: 5 MCG; BID; SC;  5 MCG; BID; SC
     Route: 058
     Dates: start: 20050703, end: 20050730
  2. BYETTA [Suspect]
     Indication: DIABETES MELLITUS NON-INSULIN-DEPENDENT
     Dosage: 5 MCG; BID; SC;  5 MCG; BID; SC
     Route: 058
     Dates: start: 20050801
  3. AMARYL [Concomitant]
  4. METFORMIN HCL [Concomitant]
  5. AVANDIA [Concomitant]
  6. AVAPRO [Concomitant]
  7. PRAVACHOL [Concomitant]
  8. TRICOR [Concomitant]
  9. FLOMAX [Concomitant]
  10. ASPIRIN [Concomitant]

REACTIONS (4)
  - DECREASED APPETITE [None]
  - DIZZINESS [None]
  - HYPOGLYCAEMIA [None]
  - TREMOR [None]
